FAERS Safety Report 5032715-9 (Version None)
Quarter: 2006Q2

REPORT INFORMATION
  Report Type: 
  Country: None (occurrence: None)
  Receive Date: 20060622
  Receipt Date: 20060616
  Transmission Date: 20061013
  Serious: Yes (Hospitalization)
  Sender: FDA-Public Use
  Company Number: 2006CG01063

PATIENT
  Age: 76 Year
  Sex: Male

DRUGS (13)
  1. ATACAND [Suspect]
     Route: 048
     Dates: start: 20011217
  2. VERAPAMIL [Suspect]
     Route: 048
     Dates: start: 20011217, end: 20060509
  3. PLAVIX [Suspect]
     Route: 048
     Dates: start: 20011217
  4. ZOLPIDEM TARTRATE [Suspect]
     Dates: start: 20011217
  5. FONZYLANE [Suspect]
     Route: 048
     Dates: start: 20011217
  6. LANZOR [Suspect]
     Route: 048
     Dates: start: 20011217
  7. CRESTOR [Concomitant]
     Route: 048
  8. GAVISCON [Concomitant]
  9. TRANSIPEG [Concomitant]
  10. TRIVASTAL [Concomitant]
     Indication: EXTRAPYRAMIDAL DISORDER
     Dates: start: 20040801, end: 20050701
  11. TRIVASTAL [Concomitant]
  12. MODOPAR [Concomitant]
     Indication: EXTRAPYRAMIDAL DISORDER
     Dates: start: 20040801, end: 20041001
  13. ARTANE [Concomitant]
     Indication: EXTRAPYRAMIDAL DISORDER
     Dates: start: 20041001, end: 20050701

REACTIONS (5)
  - CEREBRAL ATROPHY [None]
  - CHOREA [None]
  - ENCEPHALOPATHY [None]
  - EXTRAPYRAMIDAL DISORDER [None]
  - PERIPHERAL SENSORY NEUROPATHY [None]
